FAERS Safety Report 9616958 (Version 2)
Quarter: 2013Q4

REPORT INFORMATION
  Report Type: Spontaneous
  Country: US (occurrence: US)
  Receive Date: 20131011
  Receipt Date: 20131011
  Transmission Date: 20140711
  Serious: Yes (Other)
  Sender: FDA-Public Use
  Company Number: US-SA-CERZ-1003144

PATIENT
  Age: 59 Year
  Sex: Female
  Weight: 75 kg

DRUGS (1)
  1. CEREZYME [Suspect]
     Indication: GAUCHER^S DISEASE
     Dosage: DOSE : 75 U/KG DOSE:5600 UNIT(S)
     Route: 042
     Dates: start: 19940315

REACTIONS (2)
  - Fall [Unknown]
  - Upper limb fracture [Unknown]
